FAERS Safety Report 8250509-8 (Version None)
Quarter: 2012Q2

REPORT INFORMATION
  Report Type: 
  Country: None (occurrence: None)
  Receive Date: 20120402
  Receipt Date: 20120402
  Transmission Date: 20120825
  Serious: Yes (Life-Threatening)
  Sender: FDA-Public Use
  Company Number: None

PATIENT
  Age: 33 Year
  Sex: Female
  Weight: 58.967 kg

DRUGS (6)
  1. SEASONALE [Concomitant]
  2. SINGULAIR [Concomitant]
  3. CYMBALTA [Suspect]
     Indication: NEUROPATHY PERIPHERAL
     Dosage: 30 MG
     Route: 048
  4. ALLEGRA [Concomitant]
  5. MULTI-VITAMINS [Concomitant]
  6. PROBIOTICS [Concomitant]

REACTIONS (12)
  - HYPERHIDROSIS [None]
  - MUSCLE TWITCHING [None]
  - CRYING [None]
  - DIZZINESS [None]
  - PANIC REACTION [None]
  - PANIC DISORDER [None]
  - AGITATION [None]
  - NAUSEA [None]
  - TREMOR [None]
  - DRUG WITHDRAWAL SYNDROME [None]
  - ANXIETY [None]
  - HEADACHE [None]
